FAERS Safety Report 19495904 (Version 3)
Quarter: 2022Q1

REPORT INFORMATION
  Report Type: Other
  Country: GR (occurrence: GR)
  Receive Date: 20210706
  Receipt Date: 20220113
  Transmission Date: 20220424
  Serious: Yes (Hospitalization, Disabling)
  Sender: FDA-Public Use
  Company Number: GR-TEVA-2021-GR-1923803

PATIENT
  Age: 47 Year
  Sex: Female

DRUGS (5)
  1. DIAZEPAM [Suspect]
     Active Substance: DIAZEPAM
     Indication: Anxiety
     Route: 065
  2. QUETIAPINE [Suspect]
     Active Substance: QUETIAPINE
     Indication: Depression
     Route: 065
  3. ZOLPIDEM [Suspect]
     Active Substance: ZOLPIDEM TARTRATE
     Indication: Insomnia
     Route: 065
  4. DULOXETINE [Suspect]
     Active Substance: DULOXETINE
     Indication: Depression
     Route: 065
  5. INSULIN GLARGINE [Concomitant]
     Active Substance: INSULIN GLARGINE
     Indication: Type 1 diabetes mellitus

REACTIONS (8)
  - Toxicity to various agents [Recovered/Resolved]
  - Compartment syndrome [Unknown]
  - Rhabdomyolysis [Recovered/Resolved]
  - Haemodynamic instability [Recovered/Resolved]
  - Immobilisation prolonged [Recovered/Resolved]
  - Hepatic function abnormal [Recovered/Resolved]
  - Drug abuse [Unknown]
  - Acute kidney injury [Recovered/Resolved]
